FAERS Safety Report 21536110 (Version 3)
Quarter: 2022Q4

REPORT INFORMATION
  Report Type: Spontaneous
  Country: JP (occurrence: JP)
  Receive Date: 20221101
  Receipt Date: 20221229
  Transmission Date: 20230112
  Serious: Yes (Life-Threatening, Hospitalization)
  Sender: FDA-Public Use
  Company Number: JP-CHEMOCENTRYX, INC.-2022JPCCXI0420

PATIENT

DRUGS (25)
  1. TAVNEOS [Suspect]
     Active Substance: AVACOPAN
     Indication: Microscopic polyangiitis
     Dosage: 30 MG BID (60 MG/DAY) (30 MG,2 IN 1 D)
     Route: 048
     Dates: start: 20220823, end: 20221008
  2. RABEPRAZOLE SODIUM [Suspect]
     Active Substance: RABEPRAZOLE SODIUM
     Indication: Prophylaxis against gastrointestinal ulcer
     Dosage: 10 MG (10 MG,1 IN 1 D)
     Route: 048
     Dates: start: 20220815, end: 20221013
  3. ALFACALCIDOL [Suspect]
     Active Substance: ALFACALCIDOL
     Indication: Osteoporosis prophylaxis
     Dosage: 0.5 MCG (0.5 MCG,1 IN 1 D)
     Route: 048
     Dates: start: 20220815, end: 20221013
  4. SULFAMETHOXAZOLE\TRIMETHOPRIM [Suspect]
     Active Substance: SULFAMETHOXAZOLE\TRIMETHOPRIM
     Indication: Pneumocystis jirovecii infection
     Dosage: (1 DOSAGE FORMS,3 IN 1 WK)
     Route: 048
     Dates: start: 20220819, end: 20221015
  5. SULFAMETHOXAZOLE\TRIMETHOPRIM [Suspect]
     Active Substance: SULFAMETHOXAZOLE\TRIMETHOPRIM
     Indication: Prophylaxis
  6. TENELIGLIPTIN [Suspect]
     Active Substance: TENELIGLIPTIN
     Indication: Steroid diabetes
     Dosage: 20 MG (20 MG,1 IN 1 D)
     Route: 048
     Dates: start: 20220822, end: 20221006
  7. AMLODIPINE BESYLATE [Concomitant]
     Active Substance: AMLODIPINE BESYLATE
     Indication: Hypertension
     Dosage: 5 MG (5 MG,1 IN 1 D)
     Route: 048
     Dates: start: 20221013
  8. BONALON [Concomitant]
     Active Substance: ALENDRONATE SODIUM
     Indication: Osteoporosis prophylaxis
     Dosage: UNK
     Route: 048
     Dates: start: 20220822, end: 20221010
  9. REPAGLINIDE [Concomitant]
     Active Substance: REPAGLINIDE
     Indication: Steroid diabetes
     Dosage: 0.75 MG (0.75 MG,1 IN 1 D)
     Route: 048
     Dates: start: 20220829, end: 20221009
  10. CLOTIAZEPAM [Concomitant]
     Active Substance: CLOTIAZEPAM
     Indication: Depression
     Dosage: 15 MG (15 MG,1 IN 1 D)
     Route: 048
  11. CLOTIAZEPAM [Concomitant]
     Active Substance: CLOTIAZEPAM
     Indication: Insomnia
     Dosage: 15 MG (5 MG,3 IN 1 D)
     Route: 048
  12. MOSAPRIDE [Concomitant]
     Active Substance: MOSAPRIDE
     Indication: Abdominal discomfort
     Dosage: 15 MG (15 MG,1 IN 1 D)
     Route: 048
  13. BELSOMRA [Concomitant]
     Active Substance: SUVOREXANT
     Indication: Depression
     Dosage: 15 MG (15 MG,1 IN 1 D)
     Route: 048
  14. PREDONINE [Concomitant]
     Active Substance: PREDNISOLONE
     Indication: Microscopic polyangiitis
     Dosage: 25 MG (25 MG,1 IN 1 D)
     Route: 048
     Dates: start: 20220818
  15. PREDONINE [Concomitant]
     Active Substance: PREDNISOLONE
     Dosage: 20 MG (20 MG,1 IN 1 D)
     Route: 048
     Dates: start: 20220826
  16. PREDONINE [Concomitant]
     Active Substance: PREDNISOLONE
     Dosage: 17.5 MG (17.5 MG,1 IN 1 D)
     Route: 048
     Dates: start: 20220902
  17. PREDONINE [Concomitant]
     Active Substance: PREDNISOLONE
     Dosage: 15 MG (15 MG,1 IN 1 D)
     Route: 048
     Dates: start: 20220909
  18. PREDONINE [Concomitant]
     Active Substance: PREDNISOLONE
     Dosage: 12.5 MG (12.5 MG,1 IN 1 D)
     Route: 048
     Dates: start: 20220927
  19. PREDONINE [Concomitant]
     Active Substance: PREDNISOLONE
     Dosage: 40 MG (40 MG,1 IN 1 D)
     Route: 048
     Dates: start: 20221019, end: 20221024
  20. PREDONINE [Concomitant]
     Active Substance: PREDNISOLONE
     Dosage: 30 MG (30 MG,1 IN 1 D)
     Route: 048
     Dates: start: 20221025, end: 20221107
  21. PREDONINE [Concomitant]
     Active Substance: PREDNISOLONE
     Dosage: 20 MG (20 MG,1 IN 1 D)
     Route: 048
     Dates: start: 20221108, end: 20221114
  22. PREDONINE [Concomitant]
     Active Substance: PREDNISOLONE
     Dosage: 15 MG (15 MG,1 IN 1 D)
     Route: 048
     Dates: start: 20221115
  23. RITUXIMAB [Concomitant]
     Active Substance: RITUXIMAB
     Indication: Microscopic polyangiitis
     Dosage: UNK
     Route: 042
     Dates: start: 20220819, end: 20220819
  24. RITUXIMAB [Concomitant]
     Active Substance: RITUXIMAB
     Dosage: UNK
     Route: 042
     Dates: start: 20220826, end: 20220826
  25. RITUXIMAB [Concomitant]
     Active Substance: RITUXIMAB
     Dosage: UNK
     Route: 042
     Dates: start: 20220902, end: 20220902

REACTIONS (5)
  - Vanishing bile duct syndrome [Not Recovered/Not Resolved]
  - Jaundice [Not Recovered/Not Resolved]
  - Hepatic function abnormal [Not Recovered/Not Resolved]
  - Cholecystitis [Unknown]
  - Cholangitis [Unknown]

NARRATIVE: CASE EVENT DATE: 20221001
